FAERS Safety Report 8910801 (Version 4)
Quarter: 2013Q2

REPORT INFORMATION
  Report Type: Report from Study
  Country: JP (occurrence: JP)
  Receive Date: 20121116
  Receipt Date: 20130613
  Transmission Date: 20140414
  Serious: Yes (Hospitalization)
  Sender: FDA-Public Use
  Company Number: JP-JNJFOC-20121100615

PATIENT
  Age: 70 Year
  Sex: Male
  Weight: 59 kg

DRUGS (9)
  1. ABIRATERONE ACETATE [Suspect]
     Indication: PROSTATE CANCER METASTATIC
     Route: 048
     Dates: start: 20121108
  2. ABIRATERONE ACETATE [Suspect]
     Indication: PROSTATE CANCER METASTATIC
     Route: 048
     Dates: start: 20120903, end: 20121028
  3. PREDONINE [Concomitant]
     Indication: PROSTATE CANCER METASTATIC
     Route: 048
     Dates: start: 20120903
  4. LUTEINIZING HORMONE RELEASING HORMONE AGONIST [Concomitant]
     Indication: HORMONE THERAPY
     Route: 065
  5. XALATAN [Concomitant]
     Indication: GLAUCOMA
     Route: 031
     Dates: start: 20090620
  6. LOXOPROFEN [Concomitant]
     Indication: CANCER PAIN
     Route: 048
     Dates: start: 20121018
  7. CYTOTEC [Concomitant]
     Indication: PROPHYLAXIS
     Route: 048
     Dates: start: 20121022
  8. OXYCONTIN [Concomitant]
     Indication: CANCER PAIN
     Route: 048
  9. MAGLAX [Concomitant]
     Indication: CONSTIPATION
     Route: 048
     Dates: start: 20121022

REACTIONS (1)
  - Epididymitis [Recovered/Resolved]
